FAERS Safety Report 10787588 (Version 1)
Quarter: 2015Q1

REPORT INFORMATION
  Report Type: Spontaneous
  Country: US (occurrence: US)
  Receive Date: 20150212
  Receipt Date: 20150212
  Transmission Date: 20150721
  Serious: Yes (Hospitalization, Other)
  Sender: FDA-Public Use
  Company Number: US-GILEAD-2015-0136296

PATIENT
  Age: 66 Year
  Sex: Female

DRUGS (4)
  1. LETAIRIS [Suspect]
     Active Substance: AMBRISENTAN
     Indication: PULMONARY ARTERIAL HYPERTENSION
     Dosage: 5 MG, QD
     Route: 065
     Dates: start: 20110426
  2. ALDACTONE [Concomitant]
     Active Substance: SPIRONOLACTONE
  3. AMBIEN [Concomitant]
     Active Substance: ZOLPIDEM TARTRATE
  4. LASIX [Concomitant]
     Active Substance: FUROSEMIDE

REACTIONS (2)
  - Localised infection [Unknown]
  - Staphylococcal bacteraemia [Unknown]
